FAERS Safety Report 13119626 (Version 1)
Quarter: 2017Q1

REPORT INFORMATION
  Report Type: Spontaneous
  Country: FR (occurrence: FR)
  Receive Date: 20170117
  Receipt Date: 20170117
  Transmission Date: 20170428
  Serious: Yes (Hospitalization)
  Sender: FDA-Public Use
  Company Number: FR-AMGEN-FRASP2017005289

PATIENT
  Age: 69 Year
  Sex: Female

DRUGS (7)
  1. KARDEGIC [Concomitant]
     Active Substance: ASPIRIN LYSINE
     Indication: CAROTID ARTERIOSCLEROSIS
     Dosage: 75 MG, QD
     Route: 048
     Dates: start: 20161004
  2. ARANESP [Suspect]
     Active Substance: DARBEPOETIN ALFA
     Indication: ANAEMIA
     Dosage: UNK
     Route: 058
     Dates: start: 20160906
  3. OXALIPLATIN HOSPIRA [Concomitant]
     Active Substance: OXALIPLATIN
     Indication: CHOLANGIOCARCINOMA
     Dosage: 5 MG/ML, UNK (PER COURSE)
     Route: 042
     Dates: start: 20160712, end: 20161018
  4. PYOSTACINE [Concomitant]
     Active Substance: PRISTINAMYCIN
     Indication: SKIN LESION
  5. LASILIX [Concomitant]
     Active Substance: FUROSEMIDE
  6. GEMZAR [Concomitant]
     Active Substance: GEMCITABINE HYDROCHLORIDE
     Indication: CHOLANGIOCARCINOMA
     Dosage: 1000 MG, UNK (PER COURSE)
     Route: 042
     Dates: start: 20160712, end: 20161018
  7. ADENURIC [Concomitant]
     Active Substance: FEBUXOSTAT
     Indication: HYPERURICAEMIA
     Dosage: 80 MG (COATED TABLET), QD
     Route: 048
     Dates: start: 20160715

REACTIONS (1)
  - Scleroderma-like reaction [Not Recovered/Not Resolved]

NARRATIVE: CASE EVENT DATE: 20161201
